FAERS Safety Report 13789354 (Version 1)
Quarter: 2017Q3

REPORT INFORMATION
  Report Type: Spontaneous
  Country: US (occurrence: US)
  Receive Date: 20170725
  Receipt Date: 20170725
  Transmission Date: 20171127
  Serious: Yes (Other)
  Sender: FDA-Public Use
  Company Number: US-GUERBET-US-20170135

PATIENT
  Age: 34 Week
  Sex: Female
  Weight: 1.95 kg

DRUGS (1)
  1. LIPIODOL [Suspect]
     Active Substance: ETHIODIZED OIL
     Indication: LYMPHANGIOGRAM
     Dosage: ON DOL 43
     Route: 065

REACTIONS (1)
  - Hypothyroidism [Recovered/Resolved]
